FAERS Safety Report 11298820 (Version 2)
Quarter: 2015Q4

REPORT INFORMATION
  Report Type: Spontaneous
  Country: US (occurrence: US)
  Receive Date: 20150722
  Receipt Date: 20151110
  Transmission Date: 20160304
  Serious: No
  Sender: FDA-Public Use
  Company Number: US-ELI_LILLY_AND_COMPANY-US201202005678

PATIENT
  Age: 87 Year
  Sex: Female

DRUGS (3)
  1. EVISTA [Suspect]
     Active Substance: RALOXIFENE HYDROCHLORIDE
     Indication: OSTEOPOROSIS
     Dosage: 60 MG, QD
     Dates: start: 2008
  2. FORTEO [Suspect]
     Active Substance: TERIPARATIDE
     Dosage: 20 UG, QD
  3. FORTEO [Suspect]
     Active Substance: TERIPARATIDE
     Indication: OSTEOPOROSIS
     Dosage: 20 UG, QD
     Dates: start: 20120210

REACTIONS (7)
  - Spinal disorder [Unknown]
  - Oesophageal disorder [Unknown]
  - Diarrhoea [Unknown]
  - Dizziness [Unknown]
  - Nausea [Recovered/Resolved]
  - Pulmonary fibrosis [Unknown]
  - Oedema peripheral [Unknown]

NARRATIVE: CASE EVENT DATE: 201202
